FAERS Safety Report 4303762-7 (Version None)
Quarter: 2004Q1

REPORT INFORMATION
  Report Type: 
  Country: None (occurrence: None)
  Receive Date: 20040225
  Receipt Date: 20040212
  Transmission Date: 20041129
  Serious: Yes (Other)
  Sender: FDA-Public Use
  Company Number: PHBS2004BR02116

PATIENT
  Age: 39 Year
  Sex: Male
  Weight: 110 kg

DRUGS (4)
  1. TEGRETOL [Suspect]
     Indication: EPILEPSY
     Dosage: 300 MG, Q8H
     Route: 048
     Dates: start: 19940101
  2. CARBAMAZEPINE [Suspect]
     Indication: EPILEPSY
     Dates: start: 19800101
  3. PHENOBARBITAL TAB [Concomitant]
     Dosage: 1 TABLET/DAY
     Route: 048
  4. DIOVAN HCT [Concomitant]
     Indication: HYPERTENSION
     Dosage: 1 TABLET/DAY
     Route: 048
     Dates: start: 20010101

REACTIONS (2)
  - INFERTILITY [None]
  - INFERTILITY MALE [None]
